FAERS Safety Report 5494784-1 (Version None)
Quarter: 2007Q4

REPORT INFORMATION
  Report Type: 
  Country: None (occurrence: None)
  Receive Date: 20071015
  Receipt Date: 20070808
  Transmission Date: 20080405
  Serious: No
  Sender: FDA-Public Use
  Company Number: 2007SP002785

PATIENT
  Age: 74 Year
  Sex: Male
  Weight: 99.7913 kg

DRUGS (9)
  1. LUNESTA [Suspect]
     Indication: INSOMNIA
     Dosage: 3 MG;HS;ORAL : 6 MG;HS;ORAL
     Route: 048
     Dates: start: 20060101, end: 20070701
  2. LUNESTA [Suspect]
     Indication: INSOMNIA
     Dosage: 3 MG;HS;ORAL : 6 MG;HS;ORAL
     Route: 048
     Dates: start: 20070701
  3. ZOLOFT [Concomitant]
  4. HYDROCHLOROTHIAZIDE [Concomitant]
  5. ATORVASTATIN CALCIUM [Concomitant]
  6. RANTIDINE [Concomitant]
  7. DIAZEPAM [Concomitant]
  8. SEROQUEL [Concomitant]
  9. ROZEREM [Concomitant]

REACTIONS (1)
  - INSOMNIA [None]
